FAERS Safety Report 4879204-X (Version None)
Quarter: 2005Q4

REPORT INFORMATION
  Report Type: 
  Country: None (occurrence: None)
  Receive Date: 20051209
  Receipt Date: 20050928
  Transmission Date: 20060501
  Serious: Yes (Other)
  Sender: FDA-Public Use
  Company Number: USA-2005-0021341

PATIENT
  Age: 28 Year
  Sex: Male

DRUGS (2)
  1. OXYCONTIN [Suspect]
     Dosage: UNK MG, SEE TEXT, INTRAVENOUS
     Route: 042
  2. ALCOHOL (ETHANOL) [Suspect]
     Route: 065

REACTIONS (3)
  - DRUG ABUSER [None]
  - DRUG DEPENDENCE [None]
  - FATIGUE [None]
